FAERS Safety Report 8854588 (Version 1)
Quarter: 2012Q4

REPORT INFORMATION
  Report Type: 
  Country: US (occurrence: US)
  Receive Date: 20121023
  Receipt Date: 20121023
  Transmission Date: 20130627
  Serious: No
  Sender: FDA-Public Use
  Company Number: US-ASTRAZENECA-2012SE77990

PATIENT
  Sex: Female

DRUGS (2)
  1. NEXIUM [Suspect]
     Route: 048
  2. SEROQUEL [Suspect]
     Route: 048

REACTIONS (9)
  - Musculoskeletal discomfort [Unknown]
  - Feeling cold [Unknown]
  - Neck pain [Unknown]
  - Adverse event [Unknown]
  - Malaise [Unknown]
  - Hyperhidrosis [Unknown]
  - Nausea [Unknown]
  - Insomnia [Unknown]
  - Drug dose omission [Unknown]
